FAERS Safety Report 4635304-0 (Version None)
Quarter: 2005Q2

REPORT INFORMATION
  Report Type: 
  Country: None (occurrence: None)
  Receive Date: 20050411
  Receipt Date: 20050329
  Transmission Date: 20051028
  Serious: Yes (Other)
  Sender: FDA-Public Use
  Company Number: EM2005-0097

PATIENT
  Age: 32 Year
  Sex: Female
  Weight: 64 kg

DRUGS (22)
  1. PROLEUKIN [Suspect]
     Indication: MALIGNANT MELANOMA
     Dosage: 0.6 MIU/KG, Q8H, IV BOLUS
     Route: 040
     Dates: start: 20050103, end: 20050119
  2. FUROSEMIDE [Concomitant]
  3. ALPRAZOLAM [Concomitant]
  4. POTASSIUM CHLORIDE [Concomitant]
  5. DOPAMINE (DOPAMINE) [Concomitant]
  6. HEPARIN SODIUM [Concomitant]
  7. MANESIUM SULFATE (MAGENSIUM SULFATE) [Concomitant]
  8. OXYCODONE (OXYCODONE) [Concomitant]
  9. MORPHINE SULFATE [Concomitant]
  10. LORAZEPAM [Concomitant]
  11. ONDANSETRON (ONDANSETRON0 [Concomitant]
  12. CEFAZOLIN [Concomitant]
  13. DOLASETRON MESILATE (DOLASETRON MESILATE) [Concomitant]
  14. DIPHENHYDRAMINE HCL [Concomitant]
  15. FAMOTIDINE [Concomitant]
  16. INDOMETHACIN [Concomitant]
  17. ACETAMINOPHEN [Concomitant]
  18. CEPHALEXIN [Concomitant]
  19. PROCHLORPERAZINE MALEATE [Concomitant]
  20. LOPERAMIDE [Concomitant]
  21. FENTANYL CITRATE [Concomitant]
  22. MIDAZOLAM HCL [Concomitant]

REACTIONS (2)
  - AUTOIMMUNE HEPATITIS [None]
  - HEPATOCELLULAR DAMAGE [None]
